FAERS Safety Report 19602362 (Version 1)
Quarter: 2021Q3

REPORT INFORMATION
  Report Type: Spontaneous
  Country: FR (occurrence: FR)
  Receive Date: 20210723
  Receipt Date: 20210723
  Transmission Date: 20211014
  Serious: Yes (Death)
  Sender: FDA-Public Use
  Company Number: FR-TEVA-2021-FR-1934267

PATIENT
  Age: 0 Year
  Sex: Male

DRUGS (2)
  1. VAXZEVRIA [Suspect]
     Active Substance: AZD-1222
     Indication: COVID-19 IMMUNISATION
     Dosage: 1DF
     Route: 064
  2. ATENOLOL. [Suspect]
     Active Substance: ATENOLOL
     Indication: CARDIAC VALVE DISEASE
     Route: 048

REACTIONS (2)
  - Growth retardation [Fatal]
  - Premature delivery [Fatal]

NARRATIVE: CASE EVENT DATE: 20210608
